FAERS Safety Report 5091433-1 (Version None)
Quarter: 2006Q3

REPORT INFORMATION
  Report Type: 
  Country: None (occurrence: None)
  Receive Date: 20060824
  Receipt Date: 20060713
  Transmission Date: 20061208
  Serious: Yes (Other)
  Sender: FDA-Public Use
  Company Number: ISSUE - 9

PATIENT
  Age: 51 Year
  Sex: Male
  Weight: 73.4827 kg

DRUGS (6)
  1. DOXYCYCLINE [Suspect]
     Indication: SINUSITIS
     Dosage: 100 MG, 1 CAP POBID
     Dates: start: 20060623, end: 20060628
  2. LANTUS [Concomitant]
  3. HUMALOG [Concomitant]
  4. LISINOPRIL [Concomitant]
  5. LEVOTRHRYOXIBE [Concomitant]
  6. ASA 81 MG (ASPIRIN) [Concomitant]

REACTIONS (2)
  - PALPITATIONS [None]
  - SENSORY DISTURBANCE [None]
